FAERS Safety Report 10933967 (Version 4)
Quarter: 2015Q2

REPORT INFORMATION
  Report Type: Report from Study
  Country: CH (occurrence: CH)
  Receive Date: 20150320
  Receipt Date: 20150409
  Transmission Date: 20150821
  Serious: Yes (Hospitalization)
  Sender: FDA-Public Use
  Company Number: CH-ABBVIE-15P-151-1362455-00

PATIENT
  Sex: Male

DRUGS (1)
  1. DUODOPA [Suspect]
     Active Substance: CARBIDOPA\LEVODOPA
     Indication: PARKINSON^S DISEASE
     Dosage: CONTINUOUS RATE: 5.0 - 5.6ML/H: 16H THERAPY
     Route: 050
     Dates: start: 20120717

REACTIONS (3)
  - Back pain [Recovering/Resolving]
  - Lumbar spinal stenosis [Unknown]
  - Device issue [Unknown]
